FAERS Safety Report 9358704 (Version 1)
Quarter: 2013Q2

REPORT INFORMATION
  Report Type: Spontaneous
  Country: BR (occurrence: BR)
  Receive Date: 20130620
  Receipt Date: 20130620
  Transmission Date: 20140414
  Serious: Yes (Other)
  Sender: FDA-Public Use
  Company Number: BR-PFIZER INC-2013183653

PATIENT
  Age: 68 Year
  Sex: Female
  Weight: 53 kg

DRUGS (1)
  1. FRONTAL [Suspect]
     Indication: DEPRESSION
     Dosage: ONE TABLET OF 1 MG, 1X/DAY
     Route: 048
     Dates: start: 20080618

REACTIONS (6)
  - Dengue fever [Unknown]
  - Weight decreased [Unknown]
  - Feeding disorder [Unknown]
  - Depression [Not Recovered/Not Resolved]
  - Pain in extremity [Unknown]
  - Pain [Unknown]
